FAERS Safety Report 12111175 (Version 1)
Quarter: 2016Q1

REPORT INFORMATION
  Report Type: Spontaneous
  Country: US (occurrence: US)
  Receive Date: 20160224
  Receipt Date: 20160224
  Transmission Date: 20160526
  Serious: Yes (Other)
  Sender: FDA-Public Use
  Company Number: US-LANTHEUS-LMI-2015-00016

PATIENT
  Age: 53 Year
  Sex: Female
  Weight: 51 kg

DRUGS (1)
  1. DEFINITY [Suspect]
     Active Substance: PERFLUTREN
     Indication: ECHOCARDIOGRAM
     Dosage: 2 ML DEFINITY DILUTED IN 8 ML NORMAL SALINE
     Route: 040
     Dates: start: 20150108, end: 20150108

REACTIONS (3)
  - Loss of consciousness [Unknown]
  - Muscle rigidity [Unknown]
  - Choking [Unknown]

NARRATIVE: CASE EVENT DATE: 20150108
